FAERS Safety Report 15153350 (Version 1)
Quarter: 2018Q3

REPORT INFORMATION
  Report Type: Spontaneous
  Country: DE (occurrence: DE)
  Receive Date: 20180717
  Receipt Date: 20180717
  Transmission Date: 20181010
  Serious: Yes (Hospitalization)
  Sender: FDA-Public Use
  Company Number: DE-WEST-WARD PHARMACEUTICALS CORP.-DE-H14001-18-05651

PATIENT
  Age: 52 Year
  Sex: Male
  Weight: 131.9 kg

DRUGS (9)
  1. DOXORUBICIN [Suspect]
     Active Substance: DOXORUBICIN
     Indication: PRODUCT USED FOR UNKNOWN INDICATION
     Dosage: 120 MG (11.00?11.30)
     Route: 041
     Dates: start: 20180531, end: 20180531
  2. CYCLOPHOSPHAMIDE. [Suspect]
     Active Substance: CYCLOPHOSPHAMIDE
     Dosage: 1275 MG (10.00?11.00)
     Route: 041
     Dates: start: 20180622, end: 20180622
  3. PREDNISONE. [Suspect]
     Active Substance: PREDNISONE
     Dosage: 500 MG, UNK
     Route: 048
     Dates: start: 20180525, end: 20180525
  4. RIXIMYO [Suspect]
     Active Substance: RITUXIMAB
     Indication: DIFFUSE LARGE B-CELL LYMPHOMA
     Dosage: 938 MG (10.00?14.00)
     Route: 041
     Dates: start: 20180530, end: 20180530
  5. PREDNISONE. [Suspect]
     Active Substance: PREDNISONE
     Indication: PRODUCT USED FOR UNKNOWN INDICATION
     Dosage: 100 MG, UNK
     Route: 048
     Dates: start: 20180621, end: 20180625
  6. VINCRISTINE [Suspect]
     Active Substance: VINCRISTINE
     Indication: PRODUCT USED FOR UNKNOWN INDICATION
     Dosage: 2 MG, UNK
     Route: 065
     Dates: start: 20180622, end: 20180622
  7. DOXORUBICIN [Suspect]
     Active Substance: DOXORUBICIN
     Dosage: 120 MG (11.00?11.30)
     Route: 041
     Dates: start: 20180622, end: 20180622
  8. RIXIMYO [Suspect]
     Active Substance: RITUXIMAB
     Dosage: 938 MG (10.00?14.00)
     Route: 041
     Dates: start: 20180621
  9. CYCLOPHOSPHAMIDE. [Suspect]
     Active Substance: CYCLOPHOSPHAMIDE
     Indication: PRODUCT USED FOR UNKNOWN INDICATION
     Dosage: 1275 MG (10.00?11.00)
     Route: 041
     Dates: start: 20180531, end: 20180531

REACTIONS (2)
  - Supraventricular tachycardia [Recovered/Resolved]
  - Diarrhoea [Not Recovered/Not Resolved]

NARRATIVE: CASE EVENT DATE: 20180616
